FAERS Safety Report 12798890 (Version 1)
Quarter: 2016Q3

REPORT INFORMATION
  Report Type: Spontaneous
  Country: US (occurrence: US)
  Receive Date: 20160930
  Receipt Date: 20160930
  Transmission Date: 20161109
  Serious: Yes (Other)
  Sender: FDA-Public Use
  Company Number: US-JNJFOC-20160922515

PATIENT
  Sex: Female
  Weight: 97.52 kg

DRUGS (5)
  1. TRI-CYCLEN [Suspect]
     Active Substance: ETHINYL ESTRADIOL\NORGESTIMATE
     Indication: POLYCYSTIC OVARIES
     Route: 048
     Dates: start: 201608
  2. ORTHO TRI CYCLEN [Suspect]
     Active Substance: ETHINYL ESTRADIOL\NORGESTIMATE
     Indication: POLYCYSTIC OVARIES
     Route: 048
     Dates: start: 201406, end: 201501
  3. BIOTIN [Concomitant]
     Active Substance: BIOTIN
     Route: 065
  4. COBALAMIN [Concomitant]
     Active Substance: COBALAMIN
     Route: 065
  5. ORTHO CYCLEN [Suspect]
     Active Substance: ETHINYL ESTRADIOL\NORGESTIMATE
     Indication: POLYCYSTIC OVARIES
     Route: 048
     Dates: start: 201501, end: 201608

REACTIONS (23)
  - Panic attack [Recovered/Resolved]
  - Hypersomnia [Unknown]
  - Dry skin [Unknown]
  - Partner stress [Unknown]
  - Product use issue [Unknown]
  - Hypophagia [Unknown]
  - Mood swings [Unknown]
  - Amenorrhoea [Not Recovered/Not Resolved]
  - Off label use [Unknown]
  - Hair disorder [Not Recovered/Not Resolved]
  - Decreased appetite [Not Recovered/Not Resolved]
  - Fatigue [Unknown]
  - Skin striae [Unknown]
  - Exophthalmos [Unknown]
  - Menorrhagia [Unknown]
  - Weight decreased [Not Recovered/Not Resolved]
  - Abnormal behaviour [Not Recovered/Not Resolved]
  - Decreased appetite [Unknown]
  - Alopecia [Not Recovered/Not Resolved]
  - Feeling hot [Unknown]
  - Psychiatric symptom [Unknown]
  - Dysgeusia [Unknown]
  - Expired product administered [Unknown]

NARRATIVE: CASE EVENT DATE: 2014
